FAERS Safety Report 10179896 (Version 1)
Quarter: 2014Q2

REPORT INFORMATION
  Report Type: Spontaneous
  Country: US (occurrence: US)
  Receive Date: 20140519
  Receipt Date: 20140519
  Transmission Date: 20141212
  Serious: No
  Sender: FDA-Public Use
  Company Number: US-AMGEN INC.-USASP2013069536

PATIENT
  Sex: Female

DRUGS (4)
  1. PROLIA [Suspect]
     Indication: OSTEOPOROSIS POSTMENOPAUSAL
     Dosage: UNK
     Route: 065
     Dates: start: 20130301
  2. CRESTOR [Concomitant]
     Dosage: 5 MG, UNK
  3. METOPROLOL [Concomitant]
     Dosage: 25 MG, 1/2 IN THE AM AND 1 AT NIGHT
  4. VITAMINS                           /00067501/ [Concomitant]

REACTIONS (1)
  - Gingival disorder [Unknown]
